FAERS Safety Report 11922784 (Version 2)
Quarter: 2016Q1

REPORT INFORMATION
  Report Type: Report from Study
  Country: US (occurrence: US)
  Receive Date: 20160115
  Receipt Date: 20160218
  Transmission Date: 20160526
  Serious: Yes (Hospitalization, Other)
  Sender: FDA-Public Use
  Company Number: US-ARIAD PHARMACEUTICALS, INC-2015US005727

PATIENT
  Age: 42 Year
  Sex: Male

DRUGS (2)
  1. CALCIUM CHANNEL BLOCKERS [Concomitant]
     Active Substance: UNSPECIFIED INGREDIENT
     Indication: PRODUCT USED FOR UNKNOWN INDICATION
     Dosage: UNK
  2. ICLUSIG [Suspect]
     Active Substance: PONATINIB
     Indication: ACUTE MYELOID LEUKAEMIA RECURRENT
     Dosage: 15 MG, QD
     Route: 048
     Dates: start: 20151113

REACTIONS (10)
  - Stem cell transplant [Unknown]
  - Off label use [Not Recovered/Not Resolved]
  - Bacteraemia [Unknown]
  - Graft versus host disease [Unknown]
  - Streptococcal infection [Unknown]
  - Neutropenia [Unknown]
  - Escherichia bacteraemia [Unknown]
  - Polyneuropathy [Unknown]
  - Orthostatic hypotension [Unknown]
  - Bone marrow transplant [Not Recovered/Not Resolved]

NARRATIVE: CASE EVENT DATE: 201511
